FAERS Safety Report 17507246 (Version 1)
Quarter: 2020Q1

REPORT INFORMATION
  Report Type: Spontaneous
  Country: US (occurrence: US)
  Receive Date: 20200305
  Receipt Date: 20200305
  Transmission Date: 20200409
  Serious: No
  Sender: FDA-Public Use
  Company Number: US-ROCHE-2366680

PATIENT
  Sex: Female

DRUGS (1)
  1. XOLAIR [Suspect]
     Active Substance: OMALIZUMAB
     Indication: PRODUCT USED FOR UNKNOWN INDICATION
     Dosage: XOLAIR SOL 150MG INJ
     Route: 065
     Dates: start: 201901

REACTIONS (3)
  - Product use issue [Unknown]
  - Off label use [Unknown]
  - No adverse event [Unknown]
